FAERS Safety Report 8586292-6 (Version None)
Quarter: 2012Q3

REPORT INFORMATION
  Report Type: 
  Country: None (occurrence: None)
  Receive Date: 20120810
  Receipt Date: 19900326
  Transmission Date: 20120928
  Serious: Yes (Other)
  Sender: FDA-Public Use
  Company Number: US-ROCHE-1098704

PATIENT
  Sex: Male

DRUGS (8)
  1. MORPHINE SULFATE [Concomitant]
     Dosage: IUP
  2. ACTIVASE [Suspect]
     Indication: ACUTE MYOCARDIAL INFARCTION
     Route: 042
     Dates: start: 19891109
  3. PHENERGAN HCL [Concomitant]
     Dosage: IUP
  4. NITROGLYCERIN [Concomitant]
  5. LIDOCAINE [Concomitant]
     Dosage: IUP
  6. HEPARIN [Concomitant]
  7. MORPHINE SULFATE [Concomitant]
     Dosage: IUP
  8. LIDOCAINE [Concomitant]
     Dosage: 260MG IN 500CC AT 50 CC/HR

REACTIONS (4)
  - RESTLESSNESS [None]
  - NAUSEA [None]
  - CHEST PAIN [None]
  - HYPERHIDROSIS [None]
